FAERS Safety Report 11233114 (Version 1)
Quarter: 2015Q3

REPORT INFORMATION
  Report Type: Spontaneous
  Country: JP (occurrence: JP)
  Receive Date: 20150701
  Receipt Date: 20150701
  Transmission Date: 20151125
  Serious: Yes (Life-Threatening, Hospitalization, Other)
  Sender: FDA-Public Use
  Company Number: JP-GLAXOSMITHKLINE-JP2015JPN004249

PATIENT
  Age: 83 Year
  Sex: Male
  Weight: 55 kg

DRUGS (11)
  1. ZANTAC [Suspect]
     Active Substance: RANITIDINE HYDROCHLORIDE
     Indication: CHRONIC GASTRITIS
     Dosage: 300 MG, 1D
     Route: 048
     Dates: end: 20141224
  2. AMOBAN [Concomitant]
     Active Substance: ZOPICLONE
     Dosage: UNK
  3. NICOTINAMIDE [Concomitant]
     Active Substance: NIACINAMIDE
     Dosage: UNK
  4. ADETPHOS [Concomitant]
     Active Substance: ADENOSINE TRIPHOSPHATE
     Dosage: UNK
  5. BETAHISTINE MESILATE [Concomitant]
     Active Substance: BETAHISTINE MESILATE
     Dosage: UNK
  6. FLOMOX [Suspect]
     Active Substance: CEFCAPENE PIVOXIL HYDROCHLORIDE HYDRATE
     Indication: CYSTITIS
     Dosage: 300 MG, 1D
     Route: 048
     Dates: start: 20141218, end: 20141223
  7. METHAPHYLLIN [Concomitant]
     Dosage: UNK
  8. ISODINE [Concomitant]
     Active Substance: POVIDONE-IODINE
     Dosage: UNK
  9. ROZEREM [Concomitant]
     Active Substance: RAMELTEON
     Dosage: UNK
  10. KALLIDINOGENASE [Concomitant]
     Active Substance: KALLIDINOGENASE
     Dosage: UNK
  11. FLUNASE [Concomitant]
     Active Substance: FLUTICASONE PROPIONATE
     Dosage: UNK

REACTIONS (13)
  - Purpura [Unknown]
  - Skin degenerative disorder [Unknown]
  - Blister [Unknown]
  - Skin ulcer [Unknown]
  - Perivascular dermatitis [Unknown]
  - Skin exfoliation [Unknown]
  - Erythema [Unknown]
  - Blister rupture [Unknown]
  - Skin erosion [Unknown]
  - Toxic epidermal necrolysis [Recovering/Resolving]
  - Pyrexia [Recovered/Resolved]
  - Eczema [Unknown]
  - Staphylococcal infection [Unknown]

NARRATIVE: CASE EVENT DATE: 20141222
